FAERS Safety Report 9975614 (Version 1)
Quarter: 2014Q1

REPORT INFORMATION
  Report Type: Spontaneous
  Country: US (occurrence: US)
  Receive Date: 20140306
  Receipt Date: 20140306
  Transmission Date: 20141002
  Serious: No
  Sender: FDA-Public Use
  Company Number: US-ABBVIE-13P-163-1158687-00

PATIENT
  Age: 22 Year
  Sex: Female
  Weight: 51 kg

DRUGS (5)
  1. HUMIRA [Suspect]
     Indication: CROHN^S DISEASE
     Dosage: LOADING DOSE
     Dates: start: 20130929, end: 20130929
  2. HUMIRA [Suspect]
     Dates: start: 20131014, end: 20131014
  3. PREDNISONE [Concomitant]
     Indication: PRODUCT USED FOR UNKNOWN INDICATION
  4. FERROUS SULFATE [Concomitant]
     Indication: PRODUCT USED FOR UNKNOWN INDICATION
  5. TOTAL PARENTAL NUTRITION [Concomitant]
     Indication: DIARRHOEA
     Dates: start: 20130930

REACTIONS (2)
  - Drug administered at inappropriate site [Recovered/Resolved]
  - Injection site pain [Recovered/Resolved]
